FAERS Safety Report 19943260 (Version 1)
Quarter: 2021Q4

REPORT INFORMATION
  Report Type: Spontaneous
  Country: US (occurrence: US)
  Receive Date: 20211011
  Receipt Date: 20211011
  Transmission Date: 20220303
  Serious: No
  Sender: FDA-Public Use
  Company Number: US-INTRA-CELLULAR THERAPIES, INC.-2021ICT00293

PATIENT
  Age: 60 Year
  Sex: Female

DRUGS (5)
  1. CAPLYTA [Suspect]
     Active Substance: LUMATEPERONE
     Indication: Schizophrenia
  2. ARISTADA [Suspect]
     Active Substance: ARIPIPRAZOLE LAUROXIL
  3. ABILIFY [Concomitant]
     Active Substance: ARIPIPRAZOLE
     Indication: Schizophrenia
     Dosage: UNK
  4. ABILIFY [Concomitant]
     Active Substance: ARIPIPRAZOLE
     Dosage: UNK
  5. CLOZAPINE [Concomitant]
     Active Substance: CLOZAPINE

REACTIONS (2)
  - Insomnia [Unknown]
  - Memory impairment [Unknown]
